FAERS Safety Report 12434288 (Version 3)
Quarter: 2016Q2

REPORT INFORMATION
  Report Type: Report from Study
  Country: US (occurrence: US)
  Receive Date: 20160603
  Receipt Date: 20160627
  Transmission Date: 20160815
  Serious: Yes (Death, Life-Threatening, Other)
  Sender: FDA-Public Use
  Company Number: US-009507513-1606USA000615

PATIENT
  Sex: Male

DRUGS (2)
  1. KEYTRUDA [Suspect]
     Active Substance: PEMBROLIZUMAB
     Indication: LYMPHOMA
  2. KEYTRUDA [Suspect]
     Active Substance: PEMBROLIZUMAB
     Indication: B-CELL LYMPHOMA STAGE III
     Dosage: 198 MG (ALSO REPORTED AS 190 MG) , EVERY 3 WEEKS, INTRAVENOUS INFUSION
     Route: 042
     Dates: start: 20150813, end: 20160509

REACTIONS (1)
  - Malignant neoplasm progression [Fatal]
